FAERS Safety Report 9641859 (Version 2)
Quarter: 2013Q4

REPORT INFORMATION
  Report Type: Spontaneous
  Country: NO (occurrence: NO)
  Receive Date: 20131023
  Receipt Date: 20131024
  Transmission Date: 20140711
  Serious: Yes (Hospitalization)
  Sender: FDA-Public Use
  Company Number: NO-TEVA-437859ISR

PATIENT
  Sex: Male

DRUGS (3)
  1. METHOTREXATE [Suspect]
     Indication: ANKYLOSING SPONDYLITIS
     Dates: start: 2006, end: 2006
  2. SIMPONI [Suspect]
     Indication: ANKYLOSING SPONDYLITIS
     Dates: start: 2010, end: 2012
  3. REMICADE [Suspect]
     Indication: ANKYLOSING SPONDYLITIS
     Route: 051
     Dates: start: 2005, end: 2010

REACTIONS (4)
  - Pulmonary embolism [Recovering/Resolving]
  - Pulmonary embolism [Recovered/Resolved]
  - IgA nephropathy [Unknown]
  - Tubulointerstitial nephritis [Unknown]
